FAERS Safety Report 6764713-9 (Version None)
Quarter: 2010Q2

REPORT INFORMATION
  Report Type: 
  Country: None (occurrence: None)
  Receive Date: 20100610
  Receipt Date: 20100602
  Transmission Date: 20101027
  Serious: Yes (Hospitalization)
  Sender: FDA-Public Use
  Company Number: CA-PFIZER INC-2010070025

PATIENT
  Age: 74 Year
  Sex: Male

DRUGS (7)
  1. LIPITOR [Suspect]
     Dosage: UNK
     Route: 048
  2. SPORANOX [Suspect]
     Dosage: 100 MG, 2X/DAY
     Route: 048
  3. ACETYLSALICYLIC ACID [Concomitant]
     Dosage: UNK
  4. ATENOLOL [Concomitant]
     Dosage: UNK
  5. HYDROCHLOROTHIAZIDE [Concomitant]
     Dosage: UNK
  6. NORVASC [Concomitant]
     Dosage: 5 MG, UNK
  7. OXAZEPAM [Concomitant]
     Dosage: UNK

REACTIONS (6)
  - DRUG INTERACTION [None]
  - HYPOTENSION [None]
  - PURPURA [None]
  - RASH [None]
  - RESPIRATORY DISTRESS [None]
  - RHABDOMYOLYSIS [None]
